FAERS Safety Report 23075576 (Version 1)
Quarter: 2023Q4

REPORT INFORMATION
  Report Type: Spontaneous
  Country: US (occurrence: None)
  Receive Date: 20231017
  Receipt Date: 20231017
  Transmission Date: 20240110
  Serious: No
  Sender: FDA-Public Use
  Company Number: None

PATIENT
  Age: 66 Year
  Sex: Female
  Weight: 72 kg

DRUGS (13)
  1. TYRVAYA [Suspect]
     Active Substance: VARENICLINE TARTRATE
     Indication: Dry eye
     Dosage: OTHER QUANTITY : 1 SPRAY(S);?FREQUENCY : TWICE A DAY;?
     Route: 055
     Dates: start: 20230907, end: 20230924
  2. STELARA [Concomitant]
     Active Substance: USTEKINUMAB
  3. PROLIA [Concomitant]
     Active Substance: DENOSUMAB
  4. ATORVASTATIN [Concomitant]
     Active Substance: ATORVASTATIN
  5. RESTASIS [Concomitant]
     Active Substance: CYCLOSPORINE
  6. CALCIUM [Concomitant]
     Active Substance: CALCIUM
  7. VITAMINS [Concomitant]
     Active Substance: VITAMINS
  8. MINERALS\VITAMINS [Concomitant]
     Active Substance: MINERALS\VITAMINS
  9. VITAMIN D NOS [Concomitant]
     Active Substance: VITAMIN D NOS
  10. MEDICAL FOOD [Concomitant]
     Active Substance: MEDICAL FOOD
  11. BIOTIN [Concomitant]
     Active Substance: BIOTIN
  12. COLLAGEN PEPTIDES [Concomitant]
  13. PRN DR DR7YEYE [Concomitant]

REACTIONS (1)
  - Dizziness [None]

NARRATIVE: CASE EVENT DATE: 20230917
